FAERS Safety Report 6383265-9 (Version None)
Quarter: 2009Q3

REPORT INFORMATION
  Report Type: 
  Country: None (occurrence: None)
  Receive Date: 20090929
  Receipt Date: 20090922
  Transmission Date: 20100115
  Serious: Yes (Other)
  Sender: FDA-Public Use
  Company Number: 2009SP026613

PATIENT
  Age: 68 Year
  Sex: Female

DRUGS (5)
  1. MIRALAX [Suspect]
     Indication: CONSTIPATION
     Dosage: 8.5 GM; PO
     Route: 048
     Dates: end: 20090920
  2. VITAMINS [Concomitant]
  3. FISH OIL [Concomitant]
  4. HIGH BLOOD PRESSURE MEDICATION [Concomitant]
  5. CALCIUM [Concomitant]

REACTIONS (3)
  - ABDOMINAL DISTENSION [None]
  - FAECES DISCOLOURED [None]
  - FLATULENCE [None]
